FAERS Safety Report 9091769 (Version 1)
Quarter: 2013Q1

REPORT INFORMATION
  Report Type: Report from Study
  Country: US (occurrence: US)
  Receive Date: 20130131
  Receipt Date: 20130131
  Transmission Date: 20140127
  Serious: No
  Sender: FDA-Public Use
  Company Number: US-ABBOTT-12P-163-1004314-00

PATIENT
  Age: 62 Year
  Sex: Male
  Weight: 83.99 kg

DRUGS (7)
  1. HUMIRA [Suspect]
     Indication: COLITIS ULCERATIVE
     Dates: start: 20121025
  2. 6-MP [Concomitant]
     Indication: COLITIS ULCERATIVE
     Dates: start: 201208
  3. PREDNISONE [Concomitant]
     Indication: COLITIS ULCERATIVE
     Route: 048
     Dates: start: 2011
  4. OMEPRAZOLE [Concomitant]
     Indication: GASTROOESOPHAGEAL REFLUX DISEASE
     Route: 048
  5. ASPIRIN [Concomitant]
     Indication: ANTICOAGULANT THERAPY
     Route: 048
  6. MERCAPTPPURINE [Concomitant]
     Indication: COLITIS ULCERATIVE
     Route: 050
  7. ALIGN [Concomitant]
     Indication: ILL-DEFINED DISORDER
     Route: 048

REACTIONS (7)
  - Rectal haemorrhage [Not Recovered/Not Resolved]
  - Tenderness [Not Recovered/Not Resolved]
  - Drug ineffective [Not Recovered/Not Resolved]
  - Proctalgia [Not Recovered/Not Resolved]
  - Contusion [Not Recovered/Not Resolved]
  - Proctalgia [Not Recovered/Not Resolved]
  - Arthralgia [Not Recovered/Not Resolved]
